FAERS Safety Report 7610257-1 (Version None)
Quarter: 2011Q3

REPORT INFORMATION
  Report Type: 
  Country: None (occurrence: None)
  Receive Date: 20110713
  Receipt Date: 20110713
  Transmission Date: 20111222
  Serious: Yes (Life-Threatening, Hospitalization)
  Sender: FDA-Public Use
  Company Number: None

PATIENT
  Age: 66 Year
  Sex: Female
  Weight: 75.013 kg

DRUGS (2)
  1. JANUMET [Suspect]
     Dosage: JANUMET 50/1000 BID P.O.
     Route: 048
  2. VICTOZA [Suspect]
     Indication: TYPE 2 DIABETES MELLITUS
     Dosage: VICTOZA 1.8 MG QD SQ 6 MONTHS
     Route: 058

REACTIONS (8)
  - INTESTINAL OBSTRUCTION [None]
  - ULCER [None]
  - ABDOMINAL PAIN UPPER [None]
  - HAEMORRHAGIC INFARCTION [None]
  - MUCOSAL NECROSIS [None]
  - NAUSEA [None]
  - SEPTIC SHOCK [None]
  - VOMITING [None]
